FAERS Safety Report 18719433 (Version 1)
Quarter: 2021Q1

REPORT INFORMATION
  Report Type: Spontaneous
  Country: US (occurrence: US)
  Receive Date: 20210108
  Receipt Date: 20210108
  Transmission Date: 20210419
  Serious: Yes (Other)
  Sender: FDA-Public Use
  Company Number: US-PRINSTON PHARMACEUTICAL INC.-2020PRN00445

PATIENT
  Age: 41 Year
  Sex: Male

DRUGS (3)
  1. REMICADE [Concomitant]
     Active Substance: INFLIXIMAB
  2. CLONAZEPAM. [Suspect]
     Active Substance: CLONAZEPAM
     Indication: ANXIETY
     Dosage: 9 MG ^STEADILY^ PER DAY
     Route: 048
     Dates: start: 201704, end: 20201026
  3. CLONAZEPAM. [Suspect]
     Active Substance: CLONAZEPAM
     Dosage: DAILY
     Route: 048
     Dates: start: 2020

REACTIONS (1)
  - Hip surgery [Unknown]

NARRATIVE: CASE EVENT DATE: 2020
